FAERS Safety Report 25078213 (Version 1)
Quarter: 2025Q1

REPORT INFORMATION
  Report Type: Spontaneous
  Country: US (occurrence: US)
  Receive Date: 20250314
  Receipt Date: 20250314
  Transmission Date: 20250409
  Serious: No
  Sender: TAKEDA
  Company Number: US-TAKEDA-2025TUS000757

PATIENT
  Sex: Female
  Weight: 51 kg

DRUGS (4)
  1. TRINTELLIX [Suspect]
     Active Substance: VORTIOXETINE HYDROBROMIDE
     Indication: Anxiety
     Dosage: 5 MILLIGRAM, QD
  2. TRINTELLIX [Suspect]
     Active Substance: VORTIOXETINE HYDROBROMIDE
     Indication: Obsessive-compulsive disorder
  3. VALIUM [Concomitant]
     Active Substance: DIAZEPAM
     Dosage: 20 MILLIGRAM, BID
  4. VALIUM [Concomitant]
     Active Substance: DIAZEPAM
     Dosage: 15 MILLIGRAM, BID

REACTIONS (3)
  - No adverse event [Unknown]
  - Product colour issue [Unknown]
  - Product odour abnormal [Unknown]
